FAERS Safety Report 4973935-9 (Version None)
Quarter: 2006Q2

REPORT INFORMATION
  Report Type: 
  Country: None (occurrence: None)
  Receive Date: 20060417
  Receipt Date: 20060405
  Transmission Date: 20061013
  Serious: Yes (Hospitalization)
  Sender: FDA-Public Use
  Company Number: FR-BRISTOL-MYERS SQUIBB COMPANY-13345723

PATIENT
  Age: 25 Year
  Sex: Male

DRUGS (4)
  1. ENDOXAN [Suspect]
     Indication: SARCOIDOSIS
     Route: 042
     Dates: start: 20060131, end: 20060131
  2. NEURONTIN [Suspect]
     Indication: SARCOIDOSIS
     Route: 048
     Dates: start: 20060123, end: 20060202
  3. NEXIUM [Suspect]
     Indication: SARCOIDOSIS
     Route: 048
     Dates: start: 20051201, end: 20060202
  4. PAROXETINE HYDROCHLORIDE [Suspect]
     Indication: SARCOIDOSIS
     Route: 048
     Dates: start: 20051201, end: 20060202

REACTIONS (2)
  - HEPATIC ENZYME INCREASED [None]
  - PANCREATIC ENZYMES INCREASED [None]
